FAERS Safety Report 19959269 (Version 1)
Quarter: 2021Q4

REPORT INFORMATION
  Report Type: Spontaneous
  Country: US (occurrence: US)
  Receive Date: 20211014
  Receipt Date: 20211014
  Transmission Date: 20220304
  Serious: Yes (Other)
  Sender: FDA-Public Use
  Company Number: None

PATIENT

DRUGS (1)
  1. NORTRIPTYLINE HYDROCHLORIDE [Suspect]
     Active Substance: NORTRIPTYLINE HYDROCHLORIDE
     Indication: Migraine
     Dosage: ?          QUANTITY:1 CAPSULE(S);
     Dates: start: 20210812, end: 20210813

REACTIONS (5)
  - Product odour abnormal [None]
  - Nausea [None]
  - Dyspepsia [None]
  - Gastrointestinal pain [None]
  - Gastrointestinal disorder [None]

NARRATIVE: CASE EVENT DATE: 20210812
